FAERS Safety Report 9359862 (Version 5)
Quarter: 2014Q2

REPORT INFORMATION
  Report Type: Spontaneous
  Country: US (occurrence: US)
  Receive Date: 20130621
  Receipt Date: 20140422
  Transmission Date: 20141212
  Serious: No
  Sender: FDA-Public Use
  Company Number: US-009507513-1306USA009293

PATIENT
  Sex: Male

DRUGS (2)
  1. INTRONA [Suspect]
     Indication: CHRONIC HEPATITIS C
     Dosage: 3 TIMES A WEEK
     Dates: start: 19980101, end: 19990101
  2. REBETOL [Suspect]
     Indication: CHRONIC HEPATITIS C
     Dosage: UNK
     Route: 048
     Dates: start: 19980101, end: 19990101

REACTIONS (2)
  - Therapeutic response decreased [Unknown]
  - Drug ineffective [Unknown]
